FAERS Safety Report 20543925 (Version 1)
Quarter: 2022Q1

REPORT INFORMATION
  Report Type: Spontaneous
  Country: US (occurrence: None)
  Receive Date: 20220303
  Receipt Date: 20220303
  Transmission Date: 20220423
  Serious: Yes (Hospitalization)
  Sender: FDA-Public Use
  Company Number: US-ROCHE-3034921

PATIENT
  Sex: Female

DRUGS (2)
  1. ERIVEDGE [Suspect]
     Active Substance: VISMODEGIB
     Indication: Basal cell carcinoma
     Route: 065
     Dates: start: 200705
  2. ERIVEDGE [Suspect]
     Active Substance: VISMODEGIB
     Dosage: FREQUENCY: ONCE
     Route: 048
     Dates: start: 202005, end: 202005

REACTIONS (2)
  - Abdominal pain [Not Recovered/Not Resolved]
  - Cholangitis chronic [Unknown]

NARRATIVE: CASE EVENT DATE: 20200522
